FAERS Safety Report 17428061 (Version 1)
Quarter: 2020Q1

REPORT INFORMATION
  Report Type: Report from Study
  Country: ES (occurrence: ES)
  Receive Date: 20200217
  Receipt Date: 20200217
  Transmission Date: 20200409
  Serious: Yes (Hospitalization)
  Sender: FDA-Public Use
  Company Number: ES-SHIRE-ALL1-2013-08062

PATIENT

DRUGS (10)
  1. RAPAMUNE [Suspect]
     Active Substance: SIROLIMUS
     Indication: PROPHYLAXIS AGAINST TRANSPLANT REJECTION
     Dosage: UNK, UNKNOWN
     Route: 048
     Dates: start: 20110603
  2. URBASON [Concomitant]
     Active Substance: METHYLPREDNISOLONE
     Indication: IMMUNOSUPPRESSANT DRUG THERAPY
     Dosage: 40 MG, 2X/DAY:BID (EVERY 12 HOURS)
     Route: 048
     Dates: start: 20110603
  3. CORTICOSTEROID NOS [Suspect]
     Active Substance: CORTICOSTEROID NOS
     Indication: PRODUCT USED FOR UNKNOWN INDICATION
     Dosage: UNK, UNKNOWN
     Route: 065
     Dates: start: 20110603
  4. LEXATIN [Concomitant]
     Indication: ANXIETY
     Dosage: 3 MG, 1X/DAY:QD
     Route: 048
     Dates: start: 20110603
  5. PANTOPRAZOL [Concomitant]
     Active Substance: PANTOPRAZOLE SODIUM
     Indication: GASTROOESOPHAGEAL REFLUX PROPHYLAXIS
     Dosage: 40 MG, 1X/DAY:QD
     Route: 048
     Dates: start: 20110603
  6. ESCITALOPRAM [Concomitant]
     Active Substance: ESCITALOPRAM OXALATE
     Indication: DEPRESSION
     Dosage: 10 MG, 1X/DAY:QD
     Route: 048
     Dates: start: 20110603
  7. NOXAFIL [Concomitant]
     Active Substance: POSACONAZOLE
     Indication: BLOOD DISORDER
     Dosage: 200 MG, 3X/DAY:TID (EVERY 8 HOURS)
     Route: 048
     Dates: start: 20110603
  8. ICATIBANT [Suspect]
     Active Substance: ICATIBANT ACETATE
     Indication: HEREDITARY ANGIOEDEMA
     Dosage: UNK
     Route: 058
     Dates: start: 20090907
  9. SEPTRIN [Concomitant]
     Active Substance: SULFAMETHOXAZOLE\TRIMETHOPRIM
     Indication: ANTIBIOTIC THERAPY
     Dosage: 480 MG, 2X/DAY:BID
     Route: 048
     Dates: start: 20110603
  10. FOLIC ACID. [Concomitant]
     Active Substance: FOLIC ACID
     Indication: BLOOD DISORDER
     Dosage: 5 MG, 1X/DAY:QD
     Route: 048
     Dates: start: 20110603

REACTIONS (2)
  - Gastroenteritis [Recovered/Resolved]
  - Clostridium difficile infection [Recovered/Resolved]

NARRATIVE: CASE EVENT DATE: 20110730
